FAERS Safety Report 9677870 (Version 2)
Quarter: 2013Q4

REPORT INFORMATION
  Report Type: Report from Study
  Country: CA (occurrence: CA)
  Receive Date: 20131108
  Receipt Date: 20131115
  Transmission Date: 20140711
  Serious: Yes (Hospitalization)
  Sender: FDA-Public Use
  Company Number: CA-JNJFOC-20131017951

PATIENT
  Age: 37 Year
  Sex: Female
  Weight: 59 kg

DRUGS (6)
  1. REMICADE [Suspect]
     Indication: CROHN^S DISEASE
     Dosage: 2ND LODING DOSE
     Route: 042
  2. REMICADE [Suspect]
     Indication: CROHN^S DISEASE
     Route: 042
     Dates: start: 20131016
  3. CIPRO [Concomitant]
     Route: 065
  4. FLAGYL [Concomitant]
     Route: 048
  5. PREDNISONE [Concomitant]
     Route: 048
  6. IMURAN [Concomitant]
     Route: 048

REACTIONS (1)
  - Small intestinal obstruction [Unknown]
